FAERS Safety Report 8789409 (Version 1)
Quarter: 2012Q4

REPORT INFORMATION
  Report Type: Spontaneous
  Country: US (occurrence: None)
  Receive Date: 20120905
  Receipt Date: 20120905
  Transmission Date: 20130627
  Serious: Yes (Other)
  Sender: FDA-Public Use
  Company Number: AUR-APL-2012-03663

PATIENT
  Age: 74 Year
  Sex: Female
  Weight: 90.7 kg

DRUGS (2)
  1. VENLAFAXINE [Suspect]
     Indication: NEUROPATHY PERIPHERAL
     Dosage: 75 mg (75 mg,1 in 1 D), Oral
     Route: 048
     Dates: start: 2010
  2. ARMOUR THYROID [Suspect]

REACTIONS (3)
  - Eye oedema [None]
  - Eye haemorrhage [None]
  - Visual acuity reduced [None]
